FAERS Safety Report 6996695-9 (Version None)
Quarter: 2010Q3

REPORT INFORMATION
  Report Type: 
  Country: None (occurrence: None)
  Receive Date: 20100918
  Receipt Date: 20090617
  Transmission Date: 20110219
  Serious: No
  Sender: FDA-Public Use
  Company Number: US-WYE-H09796209

PATIENT
  Sex: Female
  Weight: 81.72 kg

DRUGS (1)
  1. EFFEXOR XR [Suspect]
     Indication: IRRITABILITY
     Dosage: 37.5 MG EVERY 1 TOT
     Route: 048
     Dates: start: 20090610, end: 20090610

REACTIONS (3)
  - DEPRESSED MOOD [None]
  - FATIGUE [None]
  - FEELING ABNORMAL [None]
